FAERS Safety Report 4308271-7 (Version None)
Quarter: 2004Q1

REPORT INFORMATION
  Report Type: 
  Country: None (occurrence: None)
  Receive Date: 20040301
  Receipt Date: 20031021
  Transmission Date: 20041129
  Serious: No
  Sender: FDA-Public Use
  Company Number: US-BRISTOL-MYERS SQUIBB COMPANY-12415584

PATIENT
  Age: 56 Year
  Sex: Female
  Weight: 79 kg

DRUGS (4)
  1. GLUCOPHAGE [Suspect]
     Indication: DIABETES MELLITUS
     Route: 048
     Dates: end: 20031014
  2. ZETIA [Concomitant]
  3. HYDROCHLOROTHIAZIDE [Concomitant]
  4. COZAAR [Concomitant]

REACTIONS (1)
  - VOMITING [None]
